FAERS Safety Report 5052895-9 (Version None)
Quarter: 2006Q3

REPORT INFORMATION
  Report Type: 
  Country: None (occurrence: None)
  Receive Date: 20060712
  Receipt Date: 20060630
  Transmission Date: 20061208
  Serious: Yes (Other)
  Sender: FDA-Public Use
  Company Number: 2006-07-0323

PATIENT

DRUGS (1)
  1. INTRON A [Suspect]
     Dates: start: 19950501, end: 19970630

REACTIONS (7)
  - BURSITIS [None]
  - CATARACT [None]
  - DEPRESSION [None]
  - DUPUYTREN'S CONTRACTURE [None]
  - OSTEOARTHRITIS [None]
  - TRIGGER FINGER [None]
  - VITREOUS FLOATERS [None]
